FAERS Safety Report 10150249 (Version 2)
Quarter: 2014Q2

REPORT INFORMATION
  Report Type: Report from Study
  Country: US (occurrence: US)
  Receive Date: 20140502
  Receipt Date: 20140502
  Transmission Date: 20141212
  Serious: Yes (Hospitalization)
  Sender: FDA-Public Use
  Company Number: US-ALEXION PHARMACEUTICALS INC.-A201302454

PATIENT
  Age: 23 Year
  Sex: Female

DRUGS (3)
  1. SOLIRIS [Suspect]
     Indication: HAEMOLYTIC URAEMIC SYNDROME
     Dosage: UNK
     Route: 042
     Dates: start: 20130419, end: 20130419
  2. SOLIRIS [Suspect]
     Dosage: UNK
     Route: 042
     Dates: start: 20130426, end: 20130426
  3. SOLIRIS [Suspect]
     Dosage: UNK
     Route: 042

REACTIONS (1)
  - Unevaluable event [Unknown]
